FAERS Safety Report 5705685-5 (Version None)
Quarter: 2008Q2

REPORT INFORMATION
  Report Type: 
  Country: None (occurrence: None)
  Receive Date: 20080411
  Receipt Date: 20080402
  Transmission Date: 20081010
  Serious: Yes (Hospitalization)
  Sender: FDA-Public Use
  Company Number: 2006S1006331

PATIENT
  Age: 70 Year
  Sex: Male

DRUGS (9)
  1. VINFLUNINE (624 MG) [Suspect]
     Indication: NEOPLASM MALIGNANT
     Dosage: 304 MG; INTRAVENOUS; 518 MG; INTRAVENOUS
     Route: 042
     Dates: start: 20060104, end: 20060125
  2. VINFLUNINE (624 MG) [Suspect]
     Indication: NEOPLASM MALIGNANT
     Dosage: 304 MG; INTRAVENOUS; 518 MG; INTRAVENOUS
     Route: 042
     Dates: start: 20060214
  3. KETOCONAZOLE [Suspect]
     Indication: NEOPLASM MALIGNANT
     Dosage: 400 MG; DAILY; ORAL
     Route: 048
     Dates: start: 20060103, end: 20060110
  4. PEGFILGRASTIM (CON.) [Concomitant]
  5. ZOLPIDEM (CON.) [Concomitant]
  6. VALSARTAN (CON.) [Concomitant]
  7. LORTAB /00607101/ (CON.) [Concomitant]
  8. PERCOCET /00446701/ (CON.) [Concomitant]
  9. MEGACE (CON.) [Concomitant]

REACTIONS (9)
  - BACK PAIN [None]
  - BLOOD CULTURE POSITIVE [None]
  - FEBRILE NEUTROPENIA [None]
  - ILEUS [None]
  - MYALGIA [None]
  - SMALL INTESTINAL OBSTRUCTION [None]
  - STAPHYLOCOCCAL INFECTION [None]
  - THROMBOCYTOPENIA [None]
  - UROSEPSIS [None]
